FAERS Safety Report 8619060-7 (Version None)
Quarter: 2012Q3

REPORT INFORMATION
  Report Type: 
  Country: None (occurrence: None)
  Receive Date: 20120824
  Receipt Date: 20120814
  Transmission Date: 20120928
  Serious: Yes (Other)
  Sender: FDA-Public Use
  Company Number: US-BAYER-2012-039154

PATIENT
  Age: 18 Year
  Sex: Female
  Weight: 54.422 kg

DRUGS (1)
  1. YAZ [Suspect]
     Indication: CONTRACEPTION
     Dosage: UNK
     Dates: start: 20090801, end: 20100119

REACTIONS (7)
  - NEPHRITIS [None]
  - GALLBLADDER DISORDER [None]
  - INJURY [None]
  - DEPRESSION [None]
  - HIGH RISK PREGNANCY [None]
  - PAIN [None]
  - ANXIETY [None]
